FAERS Safety Report 6295714-5 (Version None)
Quarter: 2009Q3

REPORT INFORMATION
  Report Type: 
  Country: None (occurrence: None)
  Receive Date: 20090803
  Receipt Date: 20090803
  Transmission Date: 20100115
  Serious: Yes (Hospitalization)
  Sender: FDA-Public Use
  Company Number: None

PATIENT
  Sex: Female
  Weight: 81.8 kg

DRUGS (8)
  1. CYCLOPHOSPHAMIDE [Suspect]
     Dosage: 1920 MG
  2. CYTARABINE [Concomitant]
  3. MERCAPTOPURINE [Suspect]
     Dosage: 1650 MG
  4. METHOTREXATE [Suspect]
     Dosage: 15 MG
  5. BIRTH CONTROL PILLS [Concomitant]
  6. MIRALAX [Concomitant]
  7. PEPCID [Concomitant]
  8. ZOLOFT [Concomitant]

REACTIONS (6)
  - FEBRILE NEUTROPENIA [None]
  - HYPOAESTHESIA [None]
  - HYPOAESTHESIA FACIAL [None]
  - MOBILITY DECREASED [None]
  - NAUSEA [None]
  - VOMITING [None]
